FAERS Safety Report 19152085 (Version 1)
Quarter: 2021Q2

REPORT INFORMATION
  Report Type: Spontaneous
  Country: US (occurrence: US)
  Receive Date: 20210419
  Receipt Date: 20210419
  Transmission Date: 20210717
  Serious: No
  Sender: FDA-Public Use
  Company Number: US-JNJFOC-20210408928

PATIENT

DRUGS (1)
  1. SPRAVATO [Suspect]
     Active Substance: ESKETAMINE
     Indication: PRODUCT USED FOR UNKNOWN INDICATION

REACTIONS (7)
  - Taste disorder [Unknown]
  - Lethargy [Unknown]
  - Adverse event [Unknown]
  - Dissociation [Unknown]
  - Discomfort [Unknown]
  - Nausea [Unknown]
  - Feeling abnormal [Unknown]
